FAERS Safety Report 4357581-6 (Version None)
Quarter: 2004Q2

REPORT INFORMATION
  Report Type: 
  Country: None (occurrence: None)
  Receive Date: 20040510
  Receipt Date: 20040427
  Transmission Date: 20050107
  Serious: Yes (Other)
  Sender: FDA-Public Use
  Company Number: HQWYE706504MAY04

PATIENT
  Age: 57 Year
  Sex: Male

DRUGS (8)
  1. CORDARONE [Suspect]
     Indication: ATRIAL FIBRILLATION
     Dosage: 200 MG 1X PER 1 DAY
     Dates: start: 19980101, end: 20020101
  2. CORDARONE [Suspect]
     Indication: CONGESTIVE CARDIOMYOPATHY
     Dosage: 200 MG 1X PER 1 DAY
     Dates: start: 19980101, end: 20020101
  3. WARFARIN SODIUM [Suspect]
     Dosage: SEE IMAGE
     Dates: start: 20010101, end: 20020101
  4. WARFARIN SODIUM [Suspect]
     Dosage: SEE IMAGE
     Dates: start: 20020101, end: 20020101
  5. WARFARIN SODIUM [Suspect]
     Dosage: SEE IMAGE
     Dates: start: 20020101, end: 20020101
  6. WARFARIN SODIUM [Suspect]
     Dosage: SEE IMAGE
     Dates: start: 20020101, end: 20020101
  7. WARFARIN SODIUM [Suspect]
     Dosage: SEE IMAGE
     Dates: start: 20020101, end: 20020101
  8. WARFARIN SODIUM [Suspect]
     Dosage: SEE IMAGE
     Dates: start: 19980101

REACTIONS (9)
  - ASTHENIA [None]
  - BLOOD THYROID STIMULATING HORMONE DECREASED [None]
  - DRUG INTERACTION [None]
  - GOITRE [None]
  - HYPERTHYROIDISM [None]
  - INTERNATIONAL NORMALISED RATIO INCREASED [None]
  - POOR PERIPHERAL CIRCULATION [None]
  - THYROXINE FREE INCREASED [None]
  - WEIGHT DECREASED [None]
